FAERS Safety Report 16684296 (Version 1)
Quarter: 2019Q3

REPORT INFORMATION
  Report Type: Other
  Country: DK (occurrence: DK)
  Receive Date: 20190808
  Receipt Date: 20190808
  Transmission Date: 20191004
  Serious: Yes (Hospitalization)
  Sender: FDA-Public Use
  Company Number: DK-SEATTLE GENETICS-2019SGN02769

PATIENT
  Age: 37 Year
  Sex: Female

DRUGS (8)
  1. ADCETRIS [Suspect]
     Active Substance: BRENTUXIMAB VEDOTIN
     Indication: ANGIOIMMUNOBLASTIC T-CELL LYMPHOMA
     Dosage: 160 MILLIGRAM
     Route: 065
     Dates: start: 20190603
  2. LOCOID [Concomitant]
     Active Substance: HYDROCORTISONE BUTYRATE
     Indication: SKIN DISORDER
     Dosage: UNK
     Route: 003
     Dates: start: 20190529
  3. IMOZOP [Concomitant]
     Active Substance: ZOPICLONE
     Indication: INSOMNIA
     Dosage: 3.75 MILLIGRAM
     Route: 048
     Dates: start: 20181226
  4. BENDAMUSTINE HYDROCHLORIDE. [Suspect]
     Active Substance: BENDAMUSTINE HYDROCHLORIDE
     Indication: ANGIOIMMUNOBLASTIC T-CELL LYMPHOMA
     Dosage: 180 MILLIGRAM
     Route: 065
     Dates: start: 20190624
  5. AMOXICILLIN/CLAVULANIC ACID AUROBINDO [Concomitant]
     Indication: PRODUCT USED FOR UNKNOWN INDICATION
     Dosage: UNK
     Route: 065
  6. ACICLODAN [Concomitant]
     Indication: HERPES VIRUS INFECTION
     Dosage: 800 MILLIGRAM, QD
     Route: 048
     Dates: start: 20181226
  7. ALNOK [Concomitant]
     Active Substance: CETIRIZINE HYDROCHLORIDE
     Indication: SEASONAL ALLERGY
     Dosage: 10 MILLIGRAM
     Route: 048
     Dates: start: 20190325
  8. ALLOPURINOL. [Concomitant]
     Active Substance: ALLOPURINOL
     Indication: ADVERSE DRUG REACTION
     Dosage: 300 MILLIGRAM, QD
     Route: 048

REACTIONS (3)
  - C-reactive protein increased [Unknown]
  - Infusion related reaction [Unknown]
  - Pyrexia [Unknown]

NARRATIVE: CASE EVENT DATE: 20190715
